FAERS Safety Report 5309969-4 (Version None)
Quarter: 2007Q2

REPORT INFORMATION
  Report Type: 
  Country: None (occurrence: None)
  Receive Date: 20070427
  Receipt Date: 20070420
  Transmission Date: 20071010
  Serious: Yes (Other)
  Sender: FDA-Public Use
  Company Number: 2007AC00716

PATIENT
  Age: 11 Year
  Sex: Male

DRUGS (3)
  1. SEROQUEL [Suspect]
     Indication: SCHIZOPHRENIA
     Route: 048
     Dates: start: 20070418
  2. SEROQUEL [Suspect]
     Route: 048
     Dates: start: 20070420
  3. SEROQUEL [Suspect]
     Route: 048

REACTIONS (1)
  - SYNCOPE VASOVAGAL [None]
